FAERS Safety Report 5303526-1 (Version None)
Quarter: 2007Q2

REPORT INFORMATION
  Report Type: 
  Country: None (occurrence: None)
  Receive Date: 20070420
  Receipt Date: 20070411
  Transmission Date: 20071010
  Serious: Yes (Other)
  Sender: FDA-Public Use
  Company Number: US-AMGEN-KDL211474

PATIENT
  Sex: Male

DRUGS (11)
  1. EPOGEN [Suspect]
     Indication: DIALYSIS
  2. ARANESP [Suspect]
     Indication: DIALYSIS
     Route: 065
  3. CALCITRIOL [Concomitant]
  4. DIATX [Concomitant]
  5. LIPITOR [Concomitant]
  6. NEURONTIN [Concomitant]
  7. RENAGEL [Concomitant]
  8. PROTONIX [Concomitant]
  9. TOPROL-XL [Concomitant]
  10. ZETIA [Concomitant]
  11. QUININE [Concomitant]

REACTIONS (3)
  - ACUTE LYMPHOCYTIC LEUKAEMIA [None]
  - THERAPEUTIC RESPONSE DECREASED [None]
  - THROMBOCYTOPENIA [None]
